FAERS Safety Report 16586591 (Version 1)
Quarter: 2019Q3

REPORT INFORMATION
  Report Type: Report from Study
  Country: US (occurrence: US)
  Receive Date: 20190717
  Receipt Date: 20190717
  Transmission Date: 20191004
  Serious: Yes (Hospitalization)
  Sender: FDA-Public Use
  Company Number: US-PFIZER INC-2019208117

PATIENT
  Age: 55 Year
  Sex: Female

DRUGS (1)
  1. XELJANZ XR [Suspect]
     Active Substance: TOFACITINIB CITRATE
     Indication: RHEUMATOID ARTHRITIS
     Dosage: 11 MG, 1X/DAY
     Route: 048
     Dates: start: 201903, end: 201905

REACTIONS (13)
  - Rhinorrhoea [Unknown]
  - Blister [Unknown]
  - Dermatitis acneiform [Not Recovered/Not Resolved]
  - Pain [Unknown]
  - Gait inability [Unknown]
  - Joint swelling [Unknown]
  - Arthropathy [Unknown]
  - Gait disturbance [Unknown]
  - Blood pressure increased [Unknown]
  - Cough [Unknown]
  - Acne [Not Recovered/Not Resolved]
  - Chest pain [Recovered/Resolved]
  - Fine motor skill dysfunction [Unknown]

NARRATIVE: CASE EVENT DATE: 2019
